FAERS Safety Report 21575508 (Version 2)
Quarter: 2022Q4

REPORT INFORMATION
  Report Type: Spontaneous
  Country: CN (occurrence: CN)
  Receive Date: 20221110
  Receipt Date: 20221116
  Transmission Date: 20230113
  Serious: Yes (Death)
  Sender: FDA-Public Use
  Company Number: CN-BoehringerIngelheim-2022-BI-200976

PATIENT
  Age: 62 Year
  Sex: Male
  Weight: 80 kg

DRUGS (3)
  1. ALTEPLASE [Suspect]
     Active Substance: ALTEPLASE
     Indication: Thrombolysis
     Dosage: WITHIN 1 MINUTE
     Route: 042
     Dates: start: 20220917
  2. ALTEPLASE [Suspect]
     Active Substance: ALTEPLASE
     Dosage: WITHIN 1 HOUR
     Route: 042
     Dates: end: 20220917
  3. TIROFIBAN HYDROCHLORIDE [Concomitant]
     Active Substance: TIROFIBAN HYDROCHLORIDE
     Indication: Thrombosis prophylaxis
     Route: 042
     Dates: start: 20220917, end: 20220917

REACTIONS (3)
  - Cerebral haemorrhage [Fatal]
  - Brain herniation [Fatal]
  - Product quality issue [Unknown]

NARRATIVE: CASE EVENT DATE: 20220918
